FAERS Safety Report 6829840-6 (Version None)
Quarter: 2010Q3

REPORT INFORMATION
  Report Type: 
  Country: None (occurrence: None)
  Receive Date: 20100710
  Receipt Date: 20100628
  Transmission Date: 20110219
  Serious: Yes (Disabling)
  Sender: FDA-Public Use
  Company Number: US-ELI_LILLY_AND_COMPANY-US201006007853

PATIENT
  Sex: Female

DRUGS (6)
  1. FORTEO [Suspect]
     Indication: OSTEOPOROSIS
     Dates: start: 20100603
  2. NEXIUM [Concomitant]
     Dosage: 40 MG, DAILY (1/D)
  3. LIDODERM [Concomitant]
     Dosage: 5 %, DAILY (1/D)
  4. ALLEGRA [Concomitant]
     Dosage: 180 MG, AS NEEDED
  5. ADVAIR DISKUS 100/50 [Concomitant]
     Dosage: UNK, AS NEEDED
  6. HYDROCODONE BITARTRATE [Concomitant]

REACTIONS (15)
  - ABASIA [None]
  - ASTHENIA [None]
  - BACK PAIN [None]
  - CATARACT [None]
  - CONSTIPATION [None]
  - EYE DISORDER [None]
  - JOINT SWELLING [None]
  - MALAISE [None]
  - MUSCULAR WEAKNESS [None]
  - MYALGIA [None]
  - NAUSEA [None]
  - OEDEMA PERIPHERAL [None]
  - PAIN [None]
  - VISION BLURRED [None]
  - VISUAL IMPAIRMENT [None]
